FAERS Safety Report 6385311-5 (Version None)
Quarter: 2009Q4

REPORT INFORMATION
  Report Type: 
  Country: None (occurrence: None)
  Receive Date: 20091002
  Receipt Date: 20080821
  Transmission Date: 20100525
  Serious: No
  Sender: FDA-Public Use
  Company Number: US-ASTRAZENECA-2008UW17223

PATIENT
  Age: 80 Year
  Sex: Female
  Weight: 51.3 kg

DRUGS (1)
  1. ARIMIDEX [Suspect]
     Indication: BREAST CANCER FEMALE
     Route: 048
     Dates: start: 20050101

REACTIONS (6)
  - ARTHRITIS [None]
  - DRY EYE [None]
  - DRY MOUTH [None]
  - HAIR DISORDER [None]
  - HOT FLUSH [None]
  - ONYCHOCLASIS [None]
